FAERS Safety Report 5149847-7 (Version None)
Quarter: 2006Q4

REPORT INFORMATION
  Report Type: 
  Country: None (occurrence: None)
  Receive Date: 20061108
  Receipt Date: 20061026
  Transmission Date: 20070319
  Serious: Yes (Other)
  Sender: FDA-Public Use
  Company Number: 2006123403

PATIENT
  Age: 42 Year
  Sex: Female

DRUGS (2)
  1. NEURONTIN [Suspect]
  2. ALL OTHER THERAPEUTIC PRODUCTS (ALL OTHER THERAPEUTIC PRODUCTS) [Concomitant]

REACTIONS (4)
  - ARTHROPATHY [None]
  - BLINDNESS UNILATERAL [None]
  - PAIN IN EXTREMITY [None]
  - VISUAL ACUITY REDUCED [None]
